FAERS Safety Report 10019327 (Version 1)
Quarter: 2014Q1

REPORT INFORMATION
  Report Type: Spontaneous
  Country: GB (occurrence: GB)
  Receive Date: 20140318
  Receipt Date: 20140318
  Transmission Date: 20141002
  Serious: Yes (Other)
  Sender: FDA-Public Use
  Company Number: GB-B.I. PHARMACEUTICALS,INC./RIDGEFIELD-2014-BI-10773UK

PATIENT
  Age: 76 Year
  Sex: Male
  Weight: 83 kg

DRUGS (13)
  1. PRADAXA [Suspect]
     Indication: PRODUCT USED FOR UNKNOWN INDICATION
     Dosage: 2 ANZ
     Route: 048
     Dates: start: 201312, end: 201312
  2. ADIZEM-XL CAPSULES 200MG [Concomitant]
     Route: 065
  3. ASPIRIN [Concomitant]
     Route: 065
  4. FINASTERIDE [Concomitant]
     Route: 065
  5. GLYCERYL TRINITRATE [Concomitant]
     Route: 065
  6. LATANOPROST [Concomitant]
     Route: 065
  7. NICORANDIL [Concomitant]
     Route: 065
  8. NICORANDIL [Concomitant]
     Route: 065
  9. OMEPRAZOLE [Concomitant]
     Route: 065
  10. PIOGLITAZONE [Concomitant]
     Route: 065
  11. TAMSULOSIN [Concomitant]
     Route: 065
  12. SIMVASTATIN [Concomitant]
     Route: 065
  13. TRANDOLAPRIL 2MG [Concomitant]
     Route: 065

REACTIONS (3)
  - Angina pectoris [Recovered/Resolved]
  - Haemoptysis [Recovered/Resolved]
  - Chills [Recovered/Resolved]
